FAERS Safety Report 13700805 (Version 1)
Quarter: 2017Q2

REPORT INFORMATION
  Report Type: Report from Study
  Country: US (occurrence: US)
  Receive Date: 20170629
  Receipt Date: 20170629
  Transmission Date: 20170830
  Serious: Yes (Hospitalization, Other)
  Sender: FDA-Public Use
  Company Number: US-BAYER-2017-122175

PATIENT
  Age: 9 Year
  Sex: Female

DRUGS (3)
  1. ASPIRIN. [Interacting]
     Active Substance: ASPIRIN
     Indication: CORONARY ARTERY ANEURYSM
  2. WARFARIN [Interacting]
     Active Substance: WARFARIN
     Dosage: UNK
  3. ASPIRIN. [Suspect]
     Active Substance: ASPIRIN
     Indication: KAWASAKI^S DISEASE
     Dosage: UNK

REACTIONS (10)
  - Post procedural haemorrhage [None]
  - International normalised ratio increased [None]
  - Haemorrhagic ovarian cyst [None]
  - Drug administered to patient of inappropriate age [None]
  - Uterine haemorrhage [None]
  - Off label use [None]
  - Drug administration error [None]
  - Menorrhagia [None]
  - Labelled drug-drug interaction medication error [None]
  - Product use in unapproved indication [None]
